FAERS Safety Report 10912039 (Version 1)
Quarter: 2015Q1

REPORT INFORMATION
  Report Type: Spontaneous
  Country: US (occurrence: None)
  Receive Date: 20150310
  Receipt Date: 20150310
  Transmission Date: 20150721
  Serious: Yes (Other)
  Sender: FDA-Public Use
  Company Number: None

PATIENT
  Age: 9 Month
  Sex: Male
  Weight: 9.98 kg

DRUGS (4)
  1. ALBUTEROL (ALBUTEROL) [Suspect]
     Active Substance: ALBUTEROL
     Indication: BRONCHIOLITIS
     Route: 048
     Dates: start: 20150221, end: 20150222
  2. PROBIOTICS [Concomitant]
     Active Substance: PROBIOTICS NOS
  3. ALBUTEROL (ALBUTEROL) [Suspect]
     Active Substance: ALBUTEROL
     Indication: WHEEZING
     Route: 048
     Dates: start: 20150221, end: 20150222
  4. DAILY LIQUID VITAMIN [Concomitant]

REACTIONS (1)
  - Dyskinesia [None]

NARRATIVE: CASE EVENT DATE: 20150309
